FAERS Safety Report 7452326-5 (Version None)
Quarter: 2011Q2

REPORT INFORMATION
  Report Type: 
  Country: None (occurrence: None)
  Receive Date: 20110502
  Receipt Date: 20110418
  Transmission Date: 20111010
  Serious: Yes (Other)
  Sender: FDA-Public Use
  Company Number: US-SANOFI-AVENTIS-2011SA025004

PATIENT
  Sex: Male

DRUGS (3)
  1. HUMALOG [Concomitant]
  2. SOLOSTAR [Suspect]
  3. LANTUS [Suspect]

REACTIONS (1)
  - DEVICE MALFUNCTION [None]
